FAERS Safety Report 5976504-7 (Version None)
Quarter: 2008Q4

REPORT INFORMATION
  Report Type: 
  Country: None (occurrence: None)
  Receive Date: 20081126
  Receipt Date: 20081121
  Transmission Date: 20090506
  Serious: Yes (Other)
  Sender: FDA-Public Use
  Company Number: JPI-P-005469

PATIENT
  Age: 21 Year
  Sex: Male
  Weight: 68.0396 kg

DRUGS (4)
  1. XYREM [Suspect]
     Indication: NARCOLEPSY
     Dosage: 4.5 GM (2.25 GM,2 IN 1 D), ORAL; 7.5 GM (7.5 GM,2 IN 1 D),ORAL
     Route: 048
     Dates: start: 20070227
  2. XYREM [Suspect]
     Indication: NARCOLEPSY
     Dosage: 4.5 GM (2.25 GM,2 IN 1 D), ORAL; 7.5 GM (7.5 GM,2 IN 1 D),ORAL
     Route: 048
     Dates: start: 20080905
  3. AMPHETAMINE W/DEXTROAMPHETAMINE [Concomitant]
  4. ALPRAZOLAM [Concomitant]

REACTIONS (6)
  - BIPOLAR DISORDER [None]
  - CONDITION AGGRAVATED [None]
  - DEPRESSION [None]
  - DRUG INEFFECTIVE [None]
  - FRUSTRATION [None]
  - MALAISE [None]
